FAERS Safety Report 10418422 (Version 1)
Quarter: 2014Q3

REPORT INFORMATION
  Report Type: Spontaneous
  Country: IT (occurrence: IT)
  Receive Date: 20140829
  Receipt Date: 20140829
  Transmission Date: 20150326
  Serious: Yes (Hospitalization)
  Sender: FDA-Public Use
  Company Number: IT-SA-2014SA116259

PATIENT
  Age: 73 Year
  Sex: Male

DRUGS (12)
  1. BRILIQUE [Concomitant]
     Active Substance: TICAGRELOR
     Indication: THROMBOSIS PROPHYLAXIS
     Route: 048
  2. SEQUACOR [Concomitant]
     Active Substance: BISOPROLOL
     Dosage: STRENGTH:1.25 MG?,28 TABLETS IN BLISTER PVC/AL DA
     Route: 048
  3. TRIATEC [Suspect]
     Active Substance: RAMIPRIL
     Indication: CARDIAC FAILURE
     Dosage: FORM: DIVISIBLE TABLETS
     Route: 048
  4. LASIX [Suspect]
     Active Substance: FUROSEMIDE
     Route: 048
  5. LANSOX [Concomitant]
     Active Substance: LANSOPRAZOLE
     Dosage: STRENGTH:30 MG
     Route: 048
  6. TRIATEC [Suspect]
     Active Substance: RAMIPRIL
     Dosage: FORM: DIVISIBLE TABLETS
     Route: 048
  7. GLUCOPHAGE [Suspect]
     Active Substance: METFORMIN HYDROCHLORIDE
     Indication: DIABETES MELLITUS
     Route: 048
  8. CARDIOASPIRIN [Concomitant]
     Active Substance: ASPIRIN
     Indication: THROMBOSIS PROPHYLAXIS
     Route: 048
  9. TORVAST [Concomitant]
     Active Substance: ATORVASTATIN
     Dosage: STRENGTH:20 MG
     Route: 048
  10. LANTUS [Concomitant]
     Active Substance: INSULIN GLARGINE
     Dosage: DOSE:12 IU (LESS?THA 100)
  11. LEDERFOLIN [Concomitant]
     Active Substance: LEUCOVORIN CALCIUM
     Dosage: STRENGTH:7.5 MG
     Route: 048
  12. LASIX [Suspect]
     Active Substance: FUROSEMIDE
     Indication: CARDIAC FAILURE
     Route: 048

REACTIONS (1)
  - Lactic acidosis [Recovered/Resolved]

NARRATIVE: CASE EVENT DATE: 20140718
